FAERS Safety Report 4278871-1 (Version None)
Quarter: 2004Q1

REPORT INFORMATION
  Report Type: 
  Country: None (occurrence: None)
  Receive Date: 20040122
  Receipt Date: 20040122
  Transmission Date: 20041129
  Serious: No
  Sender: FDA-Public Use
  Company Number: None

PATIENT
  Age: 43 Year
  Sex: Male

DRUGS (1)
  1. NUBAIN [Suspect]
     Indication: PAIN IN EXTREMITY
     Dosage: 10 MG IVP INTRAVENOUS
     Route: 042
     Dates: start: 20040107, end: 20040107

REACTIONS (1)
  - DYSPHORIA [None]
